FAERS Safety Report 8943480 (Version 1)
Quarter: 2012Q4

REPORT INFORMATION
  Report Type: 
  Country: US (occurrence: US)
  Receive Date: 20121204
  Receipt Date: 20121204
  Transmission Date: 20130627
  Serious: No
  Sender: FDA-Public Use
  Company Number: US-PFIZER INC-2012300693

PATIENT
  Age: 49 Year
  Sex: Male
  Weight: 159 kg

DRUGS (6)
  1. TIKOSYN [Suspect]
     Indication: ATRIAL FIBRILLATION
     Dosage: 250 ug, 2x/day
     Dates: start: 2010
  2. TIKOSYN [Suspect]
     Dosage: 125 ug, 2x/day
  3. WARFARIN SODIUM [Suspect]
     Indication: ATRIAL FIBRILLATION
     Dosage: UNK
  4. COREG [Concomitant]
     Dosage: 25 mg, 2x/day
  5. LISINOPRIL [Concomitant]
     Indication: HYPERTENSION
     Dosage: 20 mg, daily
  6. METFORMIN [Concomitant]
     Indication: DIABETES
     Dosage: 500 mg, 2x/day

REACTIONS (1)
  - Drug ineffective [Not Recovered/Not Resolved]
